FAERS Safety Report 4654954-9 (Version None)
Quarter: 2005Q2

REPORT INFORMATION
  Report Type: 
  Country: None (occurrence: None)
  Receive Date: 20050504
  Receipt Date: 20050421
  Transmission Date: 20051028
  Serious: Yes (Hospitalization, Other)
  Sender: FDA-Public Use
  Company Number: KII-2005-0016295

PATIENT
  Age: 33 Year
  Sex: Male

DRUGS (2)
  1. MORPHINE SULFATE [Suspect]
     Dosage: ORAL
     Route: 048
  2. ZIPRASIDONE (ZIPRASIDONE) [Suspect]
     Dosage: ORAL
     Route: 048

REACTIONS (6)
  - BLOOD PRESSURE INCREASED [None]
  - COMA [None]
  - DRUG SCREEN POSITIVE [None]
  - RESPIRATORY DEPRESSION [None]
  - SINUS TACHYCARDIA [None]
  - SOMNOLENCE [None]
